FAERS Safety Report 6877360-5 (Version None)
Quarter: 2010Q3

REPORT INFORMATION
  Report Type: 
  Country: None (occurrence: None)
  Receive Date: 20100727
  Receipt Date: 20090930
  Transmission Date: 20110219
  Serious: No
  Sender: FDA-Public Use
  Company Number: US-ABBOTT-09P-163-0600908-00

PATIENT
  Sex: Female

DRUGS (1)
  1. SYNTHROID [Suspect]
     Indication: THYROIDECTOMY

REACTIONS (7)
  - HYPERSOMNIA [None]
  - HYPOAESTHESIA [None]
  - MALAISE [None]
  - MENSTRUATION IRREGULAR [None]
  - MOBILITY DECREASED [None]
  - MUSCLE SPASMS [None]
  - WEIGHT INCREASED [None]
